FAERS Safety Report 4520315-6 (Version None)
Quarter: 2004Q4

REPORT INFORMATION
  Report Type: 
  Country: None (occurrence: None)
  Receive Date: 20041203
  Receipt Date: 20041122
  Transmission Date: 20050328
  Serious: Yes (Hospitalization, Other)
  Sender: FDA-Public Use
  Company Number: CAN-2004-0000216

PATIENT
  Age: 53 Year
  Sex: Male

DRUGS (4)
  1. OXYCONTIN [Suspect]
     Indication: PAIN
     Dosage: SEE TEXT
     Dates: end: 20030101
  2. PERCOCET [Suspect]
     Indication: PAIN
     Dosage: SEE TEXT
  3. ALCOHOL (ETHANOL) [Suspect]
     Dosage: SEE TEXT
  4. COCAINE (COCAINE) [Suspect]

REACTIONS (10)
  - ACCIDENT [None]
  - DRUG DEPENDENCE [None]
  - DRUG WITHDRAWAL SYNDROME [None]
  - INTENTIONAL MISUSE [None]
  - LIVER DISORDER [None]
  - LOSS OF CONSCIOUSNESS [None]
  - PARALYSIS [None]
  - POLYSUBSTANCE ABUSE [None]
  - SPINAL COMPRESSION FRACTURE [None]
  - SUICIDAL IDEATION [None]
